FAERS Safety Report 16864315 (Version 2)
Quarter: 2019Q4

REPORT INFORMATION
  Report Type: Spontaneous
  Country: US (occurrence: US)
  Receive Date: 20190927
  Receipt Date: 20191004
  Transmission Date: 20200122
  Serious: Yes (Hospitalization)
  Sender: FDA-Public Use
  Company Number: US-SHIRE-US201931744

PATIENT
  Age: 46 Year
  Sex: Male

DRUGS (10)
  1. TUMS [Concomitant]
     Active Substance: CALCIUM CARBONATE
     Indication: HYPOCALCAEMIA
  2. HCTZ [Concomitant]
     Active Substance: HYDROCHLOROTHIAZIDE
     Indication: HYPOCALCAEMIA
  3. HCTZ [Concomitant]
     Active Substance: HYDROCHLOROTHIAZIDE
     Indication: HYPOTHYROIDISM
  4. TUMS [Concomitant]
     Active Substance: CALCIUM CARBONATE
     Indication: HYPOPARATHYROIDISM
  5. KCL [Concomitant]
     Active Substance: POTASSIUM CHLORIDE
     Indication: HYPOCALCAEMIA
  6. KCL [Concomitant]
     Active Substance: POTASSIUM CHLORIDE
     Indication: HYPOPARATHYROIDISM
  7. CALCITRIOL;CALCIUM [Concomitant]
     Indication: HYPOCALCAEMIA
  8. NATPARA (PARATHYROID HORMONE) [Suspect]
     Active Substance: PARATHYROID HORMONE
     Indication: HYPOPARATHYROIDISM
     Dosage: 100 MICROGRAM, 1X/DAY:QD
     Route: 050
     Dates: start: 20171211
  9. NATPARA (PARATHYROID HORMONE) [Suspect]
     Active Substance: PARATHYROID HORMONE
     Indication: HYPOCALCAEMIA
  10. CALCITRIOL;CALCIUM [Concomitant]
     Indication: HYPOPARATHYROIDISM

REACTIONS (2)
  - Blood calcium decreased [Not Recovered/Not Resolved]
  - Disease progression [Unknown]

NARRATIVE: CASE EVENT DATE: 20190916
